FAERS Safety Report 6927154-7 (Version None)
Quarter: 2010Q3

REPORT INFORMATION
  Report Type: 
  Country: None (occurrence: None)
  Receive Date: 20100816
  Receipt Date: 20100805
  Transmission Date: 20110219
  Serious: No
  Sender: FDA-Public Use
  Company Number: US-ABBOTT-10P-163-0661594-00

PATIENT
  Sex: Male
  Weight: 82.628 kg

DRUGS (6)
  1. SIMCOR [Suspect]
     Indication: CORONARY ARTERIAL STENT INSERTION
     Dosage: 500/20MG X 2 TABS AT BEDTIME
  2. SIMCOR [Suspect]
     Indication: MYOCARDIAL INFARCTION
  3. ASPIRIN [Concomitant]
     Indication: PRODUCT USED FOR UNKNOWN INDICATION
     Dosage: AM
  4. PLAVIX [Concomitant]
     Indication: PRODUCT USED FOR UNKNOWN INDICATION
     Dosage: AM
  5. DIOVAN [Concomitant]
     Indication: PRODUCT USED FOR UNKNOWN INDICATION
     Dosage: AM
  6. UNKNOWN MEDICATION [Concomitant]
     Indication: PROSTATIC DISORDER
     Dosage: PM

REACTIONS (2)
  - FLUSHING [None]
  - PARAESTHESIA [None]
